FAERS Safety Report 19948794 (Version 2)
Quarter: 2021Q4

REPORT INFORMATION
  Report Type: Spontaneous
  Country: JP (occurrence: JP)
  Receive Date: 20211012
  Receipt Date: 20211101
  Transmission Date: 20220303
  Serious: Yes (Hospitalization, Other)
  Sender: FDA-Public Use
  Company Number: JP-BRISTOL-MYERS SQUIBB COMPANY-BMS-2020-042698

PATIENT
  Age: 52 Year
  Sex: Female
  Weight: 102 kg

DRUGS (8)
  1. OPDIVO [Suspect]
     Active Substance: NIVOLUMAB
     Indication: Head and neck cancer
     Dosage: 240 MILLIGRAM
     Route: 041
     Dates: start: 20180815, end: 20191113
  2. AMLODIPINE [Concomitant]
     Active Substance: AMLODIPINE BESYLATE
     Indication: Product used for unknown indication
     Dosage: UNK
     Route: 048
  3. LAFUTIDINE [Concomitant]
     Active Substance: LAFUTIDINE
     Indication: Product used for unknown indication
     Dosage: UNK
     Route: 048
  4. MIYA-BM [Concomitant]
     Active Substance: CLOSTRIDIUM BUTYRICUM SPORES STRAIN M-55
     Indication: Product used for unknown indication
     Dosage: UNK
     Route: 065
  5. TRAMADOL [Concomitant]
     Active Substance: TRAMADOL
     Indication: Product used for unknown indication
     Dosage: UNK
     Route: 048
  6. MAGNESIUM OXIDE [Concomitant]
     Active Substance: MAGNESIUM OXIDE
     Indication: Product used for unknown indication
     Dosage: UNK
     Route: 065
  7. LYRICA [Concomitant]
     Active Substance: PREGABALIN
     Indication: Product used for unknown indication
     Dosage: UNK
     Route: 048
  8. CORTRIL [Concomitant]
     Active Substance: HYDROCORTISONE
     Indication: Product used for unknown indication
     Dosage: UNK
     Route: 048

REACTIONS (5)
  - Adrenal insufficiency [Not Recovered/Not Resolved]
  - Abdominal pain [Recovering/Resolving]
  - Interstitial lung disease [Recovering/Resolving]
  - Enterocolitis [Unknown]
  - Hypopituitarism [Unknown]

NARRATIVE: CASE EVENT DATE: 20181116
